FAERS Safety Report 7763877-8 (Version None)
Quarter: 2011Q3

REPORT INFORMATION
  Report Type: 
  Country: None (occurrence: None)
  Receive Date: 20110919
  Receipt Date: 20110912
  Transmission Date: 20111222
  Serious: Yes (Other)
  Sender: FDA-Public Use
  Company Number: 2011SP027589

PATIENT
  Sex: Male

DRUGS (5)
  1. CLOTIAZEPAM [Concomitant]
  2. QUAZEPAM [Concomitant]
  3. LUVOX [Suspect]
     Indication: DEPRESSION
     Dosage: 50 MG;QD;PO  25 MG;QD;PO
     Route: 048
     Dates: start: 20110523, end: 20110606
  4. LUVOX [Suspect]
     Indication: DEPRESSION
     Dosage: 50 MG;QD;PO  25 MG;QD;PO
     Route: 048
     Dates: start: 20110519, end: 20110522
  5. MIRTAZAPINE [Suspect]
     Indication: DEPRESSION
     Dosage: 7.5 MG;QD; PO
     Route: 048
     Dates: start: 20110519, end: 20110605

REACTIONS (1)
  - LIVER DISORDER [None]
